FAERS Safety Report 5584205-2 (Version None)
Quarter: 2008Q1

REPORT INFORMATION
  Report Type: 
  Country: None (occurrence: None)
  Receive Date: 20080108
  Receipt Date: 20071231
  Transmission Date: 20080703
  Serious: Yes (Hospitalization)
  Sender: FDA-Public Use
  Company Number: CH-WYE-H01917308

PATIENT
  Age: 74 Year
  Sex: Female

DRUGS (8)
  1. CORDARONE [Suspect]
     Indication: ATRIAL FLUTTER
     Route: 048
     Dates: start: 20070501
  2. CORDARONE [Suspect]
     Indication: ATRIAL FIBRILLATION
  3. ROCEPHIN [Suspect]
     Indication: DIVERTICULAR PERFORATION
     Route: 040
     Dates: start: 20070422
  4. CLEXANE [Concomitant]
     Route: 058
     Dates: start: 20070424
  5. METOPROLOL TARTRATE [Concomitant]
     Indication: ATRIAL FIBRILLATION
     Route: 048
     Dates: start: 20070420
  6. DIGOXIN [Concomitant]
     Dosage: 0.5 MG, GIVEN AS A ONE TIME DOSE
     Route: 065
     Dates: start: 20070420, end: 20070420
  7. FLAGYL [Suspect]
     Indication: DIVERTICULAR PERFORATION
     Route: 040
     Dates: start: 20070422
  8. AMOXICILLIN + CLAVULANATE POTASSIUM [Suspect]
     Dosage: DOSE UNKNOWN, GIVEN ONCE
     Route: 065
     Dates: start: 20070420, end: 20070420

REACTIONS (2)
  - RASH [None]
  - TOXIC SKIN ERUPTION [None]
